FAERS Safety Report 19419478 (Version 2)
Quarter: 2021Q3

REPORT INFORMATION
  Report Type: Spontaneous
  Country: DE (occurrence: DE)
  Receive Date: 20210615
  Receipt Date: 20210810
  Transmission Date: 20211014
  Serious: Yes (Disabling, Other)
  Sender: FDA-Public Use
  Company Number: DE-IPSEN BIOPHARMACEUTICALS, INC.-2021-14630

PATIENT
  Age: 68 Year
  Sex: Male
  Weight: 78 kg

DRUGS (8)
  1. SOMATULINE AUTOGEL [Suspect]
     Active Substance: LANREOTIDE ACETATE
     Indication: CARCINOID SYNDROME
  2. PANTOPRAZOLE [Concomitant]
     Active Substance: PANTOPRAZOLE
  3. SELENASE [Concomitant]
     Dosage: 300 RP
     Route: 048
     Dates: start: 2018
  4. SOMATULINE AUTOGEL [Suspect]
     Active Substance: LANREOTIDE ACETATE
     Indication: NEUROENDOCRINE CARCINOMA METASTATIC
     Route: 065
     Dates: start: 201909
  5. AMLODIPINE [Concomitant]
     Active Substance: AMLODIPINE BESYLATE
     Indication: HYPERTENSION
     Route: 048
     Dates: start: 2018
  6. D3?VICOTRAT [Concomitant]
     Dosage: 100.000 I.E. 1 X MONTHLY BY INJECTION
     Dates: start: 2018
  7. TESTOGEL [Concomitant]
     Active Substance: TESTOSTERONE
     Dosage: DAILY SKIN APPLICATION
     Dates: start: 2018
  8. IRBESARTAN. [Concomitant]
     Active Substance: IRBESARTAN
     Indication: HYPERTENSION
     Route: 048
     Dates: start: 2018

REACTIONS (5)
  - Epilepsy [Not Recovered/Not Resolved]
  - Coma [Unknown]
  - Tremor [Unknown]
  - Fatigue [Unknown]
  - Injection site nodule [Unknown]

NARRATIVE: CASE EVENT DATE: 201909
